FAERS Safety Report 9806107 (Version 1)
Quarter: 2014Q1

REPORT INFORMATION
  Report Type: Spontaneous
  Country: KR (occurrence: KR)
  Receive Date: 20140109
  Receipt Date: 20140109
  Transmission Date: 20141002
  Serious: Yes (Other)
  Sender: FDA-Public Use
  Company Number: PHHY2013KR154978

PATIENT
  Age: 14 Year
  Sex: Female

DRUGS (3)
  1. CICLOSPORIN [Suspect]
     Indication: IMMUNOSUPPRESSION
  2. ANTIFUNGALS [Concomitant]
  3. TRIMETHOPRIM SULFAMETHOXAZOLE [Concomitant]

REACTIONS (7)
  - Nervous system disorder [Unknown]
  - Convulsion [Recovering/Resolving]
  - Neurotoxicity [Recovering/Resolving]
  - Immunosuppressant drug level increased [Recovering/Resolving]
  - Toxicity to various agents [Recovering/Resolving]
  - Blood magnesium increased [Unknown]
  - Blood pressure increased [Unknown]
